FAERS Safety Report 16639654 (Version 1)
Quarter: 2019Q3

REPORT INFORMATION
  Report Type: Spontaneous
  Country: US (occurrence: US)
  Receive Date: 20190727
  Receipt Date: 20190727
  Transmission Date: 20191004
  Serious: No
  Sender: FDA-Public Use
  Company Number: US-ZYDUS-037158

PATIENT
  Age: 70 Year
  Sex: Male

DRUGS (1)
  1. CHOLESTYRAMINE. [Suspect]
     Active Substance: CHOLESTYRAMINE
     Indication: DIARRHOEA
     Route: 048
     Dates: start: 20190428, end: 20190504

REACTIONS (4)
  - Product physical consistency issue [Recovered/Resolved]
  - Constipation [Recovered/Resolved]
  - Product use in unapproved indication [Recovered/Resolved]
  - Product taste abnormal [Recovered/Resolved]

NARRATIVE: CASE EVENT DATE: 20190428
